FAERS Safety Report 11101887 (Version 1)
Quarter: 2015Q2

REPORT INFORMATION
  Report Type: Spontaneous
  Country: US (occurrence: US)
  Receive Date: 20150510
  Receipt Date: 20150510
  Transmission Date: 20150821
  Serious: No
  Sender: FDA-Public Use
  Company Number: US-AMGEN-USASP2015042893

PATIENT
  Age: 43 Year
  Sex: Male

DRUGS (1)
  1. ENBREL [Suspect]
     Active Substance: ETANERCEPT
     Indication: PSORIASIS
     Dosage: 50 MG  TWICE A WEEK FOLLOWED BY ONCE A WEEK AND THEN EVERY OTHER WEEK FOR TOTAL OF ABOUT 8 MONTHS
     Route: 065
     Dates: start: 2013, end: 2014

REACTIONS (1)
  - Psoriasis [Not Recovered/Not Resolved]
